FAERS Safety Report 9169676 (Version 1)
Quarter: 2013Q1

REPORT INFORMATION
  Report Type: Spontaneous
  Country: US (occurrence: US)
  Receive Date: 20130318
  Receipt Date: 20130318
  Transmission Date: 20140127
  Serious: Yes (Death, Hospitalization, Disabling)
  Sender: FDA-Public Use
  Company Number: US-PFIZER INC-US-WYE-H03726108

PATIENT
  Age: 65 Year
  Sex: Female
  Weight: 43 kg

DRUGS (20)
  1. TYGACIL [Suspect]
     Indication: PNEUMONIA
     Dosage: 100 MG LOADING DOSE, THEN 50 MG DAILY
     Route: 041
     Dates: start: 20080219, end: 20080225
  2. TYGACIL [Suspect]
     Indication: SEPSIS
  3. TAMIFLU [Suspect]
     Indication: INFLUENZA
     Dosage: 75 MG, 2X/DAY
     Route: 048
     Dates: start: 20080220, end: 20080224
  4. AMLODIPINE [Concomitant]
     Route: 065
  5. LOMOTIL [Concomitant]
     Route: 065
  6. BUSPIRONE [Concomitant]
     Route: 065
  7. CALCIUM CARBONATE/ERGOCALCIFEROL/RETINOL [Concomitant]
     Route: 065
  8. CARVEDILOL [Concomitant]
     Route: 065
  9. DOXAZOSIN [Concomitant]
     Route: 065
  10. EPOETIN ALFA [Concomitant]
     Route: 065
  11. GUAIFENESIN [Concomitant]
     Route: 065
  12. HYDRALAZINE [Concomitant]
     Route: 065
  13. LABETALOL [Concomitant]
     Route: 065
  14. LEVOFLOXACIN [Concomitant]
     Dosage: UNK
     Route: 065
     Dates: end: 20080219
  15. MEDROL [Concomitant]
     Route: 065
  16. ONDANSETRON [Concomitant]
     Route: 065
  17. OXYCODONE [Concomitant]
  18. PROTONIX [Concomitant]
     Route: 042
  19. TEMAZEPAM [Concomitant]
  20. TRAZODONE [Concomitant]
     Route: 065

REACTIONS (7)
  - Pancreatitis [Fatal]
  - Cardio-respiratory arrest [Fatal]
  - Drug ineffective [Fatal]
  - Encephalopathy [Unknown]
  - Disseminated intravascular coagulation [Unknown]
  - Respiratory failure [Unknown]
  - Disease progression [Unknown]
